FAERS Safety Report 10034626 (Version 1)
Quarter: 2014Q1

REPORT INFORMATION
  Report Type: Spontaneous
  Country: GB (occurrence: None)
  Receive Date: 20140321
  Receipt Date: 20140321
  Transmission Date: 20141002
  Serious: Yes (Other)
  Sender: FDA-Public Use
  Company Number: AUR-APL-2014-03012

PATIENT
  Age: 37 Year
  Sex: Female
  Weight: 62.59 kg

DRUGS (4)
  1. NAPROXEN (NAPROXEN) [Suspect]
     Indication: BACK PAIN
     Dosage: 250 MG, 3 IN 1 D
     Route: 048
     Dates: start: 20140224, end: 20140225
  2. BUDESONIDE [Concomitant]
  3. CETIRIZINE [Concomitant]
  4. VENTOLIN [Concomitant]

REACTIONS (7)
  - Pruritus [None]
  - Burning feet syndrome [None]
  - Local swelling [None]
  - Paraesthesia oral [None]
  - Chest discomfort [None]
  - Oral pruritus [None]
  - Skin exfoliation [None]
